FAERS Safety Report 9039274 (Version 1)
Quarter: 2013Q1

REPORT INFORMATION
  Report Type: Spontaneous
  Country: US (occurrence: None)
  Receive Date: 20130123
  Receipt Date: 20130123
  Transmission Date: 20140127
  Serious: Yes (Other)
  Sender: FDA-Public Use
  Company Number: None

PATIENT
  Age: 17 Year
  Sex: Male
  Weight: 79.38 kg

DRUGS (1)
  1. ACCUTANE [Suspect]
     Route: 048
     Dates: start: 19980810, end: 19990210

REACTIONS (4)
  - Erectile dysfunction [None]
  - No therapeutic response [None]
  - Libido decreased [None]
  - Sexual dysfunction [None]
